FAERS Safety Report 12239207 (Version 1)
Quarter: 2016Q2

REPORT INFORMATION
  Report Type: Spontaneous
  Country: US (occurrence: US)
  Receive Date: 20160405
  Receipt Date: 20160405
  Transmission Date: 20160815
  Serious: Yes (Other)
  Sender: FDA-Public Use
  Company Number: US-MDT-ADR-2016-00390

PATIENT
  Age: 62 Year
  Sex: Female

DRUGS (4)
  1. HYDROMORPHONE [Suspect]
     Active Substance: HYDROMORPHONE
     Dosage: 4.006 MG/DAY
     Route: 037
  2. SALINE [Suspect]
     Active Substance: SODIUM CHLORIDE
     Route: 037
  3. BACLOFEN. [Suspect]
     Active Substance: BACLOFEN
     Dosage: 160.2 MCG/DAY
     Route: 037
  4. BUPIVACAINE. [Suspect]
     Active Substance: BUPIVACAINE
     Dosage: 4.006 MG/DAY
     Route: 037

REACTIONS (2)
  - Pain [Recovered/Resolved]
  - No therapeutic response [Recovered/Resolved]
